FAERS Safety Report 9908085 (Version 1)
Quarter: 2013Q2

REPORT INFORMATION
  Report Type: Spontaneous
  Country: US (occurrence: None)
  Receive Date: 20130305
  Receipt Date: 20130305
  Transmission Date: 20140414
  Serious: Yes (Hospitalization, Other)
  Sender: FDA-Public Use
  Company Number: 163-21880-12041832

PATIENT
  Age: 93 Year
  Sex: Male

DRUGS (15)
  1. REVLIMID (LENALIDOMIDE) (5 MILLIGRAM, CAPSULES) [Suspect]
     Indication: MYELODYSPLASTIC SYNDROME
     Dosage: 5 MG, 1 IN 1 D, PO
     Route: 048
     Dates: start: 201109, end: 20120406
  2. ASA (ACETYSALICYLIC ACID) (UNKNOWN) [Concomitant]
  3. SENNA S (COLOXYL WITH SENNA) (UNKNOWN) [Concomitant]
  4. GEMFIBROZIL (GEMFIBROZIL) (UNKNOWN) [Concomitant]
  5. OMEPRAZOLE (OMEPRAZOLE) (UNKNOWN) [Concomitant]
  6. PRESERVISION (UNKNOWN) [Concomitant]
  7. FINASTERIDE (FINASTERIDE) (UNKNOWN) [Concomitant]
  8. VITAMIN E (TOCOPHEROL) (UNKNOWN) [Concomitant]
  9. VITAMIN D (ERGOCALCIFEROL) (UNKNOWN) [Concomitant]
  10. B12 (UNKNOWN) [Concomitant]
  11. CALCIUM (CALCIUM) (UNKNOWN) [Concomitant]
  12. LEVOXYL (LEVOTHYROXINE SODIUM) (UNKNOWN) [Concomitant]
  13. LOVENOX (HEPARIN-FRACTION, SODIUM SALT) (UNKNOWN) [Concomitant]
  14. VENOFER (SACCHARATE IRON OXIDE) (UNKNOWN) [Concomitant]
  15. PROCRIT (ERYTHROPOIETIN) (UNKNOWN) [Concomitant]

REACTIONS (5)
  - Renal failure acute [None]
  - Presyncope [None]
  - Fall [None]
  - Deep vein thrombosis [None]
  - Fatigue [None]
